FAERS Safety Report 13950709 (Version 18)
Quarter: 2019Q1

REPORT INFORMATION
  Report Type: Spontaneous
  Country: JP (occurrence: JP)
  Receive Date: 20170908
  Receipt Date: 20190205
  Transmission Date: 20190417
  Serious: Yes (Life-Threatening, Hospitalization, Disabling, Other)
  Sender: FDA-Public Use
  Company Number: JP-009507513-1708JPN001278J

PATIENT
  Age: 77 Year
  Sex: Female
  Weight: 67.4 kg

DRUGS (4)
  1. KEYTRUDA [Suspect]
     Active Substance: PEMBROLIZUMAB
     Indication: LUNG ADENOCARCINOMA STAGE III
     Dosage: 200 MG, Q3W
     Route: 041
     Dates: start: 20170616, end: 20170616
  2. CANDESARTAN. [Concomitant]
     Active Substance: CANDESARTAN
     Indication: HYPERTENSION
     Dosage: 8 MILLIGRAM
     Route: 048
  3. FUROSEMIDE. [Concomitant]
     Active Substance: FUROSEMIDE
     Indication: HYPERTENSION
     Dosage: 40 MILLIGRAM
     Route: 048
  4. KETOPROFEN. [Concomitant]
     Active Substance: KETOPROFEN
     Route: 065

REACTIONS (10)
  - Alanine aminotransferase increased [Unknown]
  - Radiation pneumonitis [Recovered/Resolved]
  - Myasthenia gravis [Recovered/Resolved with Sequelae]
  - Aspartate aminotransferase increased [Unknown]
  - Pneumonia bacterial [Unknown]
  - Platelet count decreased [Recovered/Resolved]
  - Blood lactate dehydrogenase increased [Unknown]
  - Myositis [Recovered/Resolved]
  - Interstitial lung disease [Recovering/Resolving]
  - Diarrhoea [Unknown]

NARRATIVE: CASE EVENT DATE: 20170707
